FAERS Safety Report 10677025 (Version 4)
Quarter: 2015Q1

REPORT INFORMATION
  Report Type: Spontaneous
  Country: AR (occurrence: AR)
  Receive Date: 20141226
  Receipt Date: 20150330
  Transmission Date: 20150720
  Serious: Yes (Hospitalization, Other)
  Sender: FDA-Public Use
  Company Number: AR-PFIZER INC-2014355698

PATIENT
  Age: 72 Year
  Sex: Male

DRUGS (1)
  1. SUTENT [Suspect]
     Active Substance: SUNITINIB MALATE
     Indication: METASTATIC RENAL CELL CARCINOMA
     Dosage: 50 MG, CYCLIC (DAILY (4/2 SCHEME))
     Dates: start: 20141006

REACTIONS (21)
  - Seizure [Recovered/Resolved]
  - Abasia [Unknown]
  - Tremor [Recovered/Resolved]
  - Gait disturbance [Recovered/Resolved]
  - Blister [Not Recovered/Not Resolved]
  - Pyrexia [Recovered/Resolved]
  - Stomatitis [Unknown]
  - Syncope [Recovered/Resolved]
  - Skin exfoliation [Not Recovered/Not Resolved]
  - Limb injury [Unknown]
  - Capillary fragility [Unknown]
  - Contusion [Unknown]
  - Disorientation [Recovered/Resolved]
  - Metastatic renal cell carcinoma [Unknown]
  - Hypotension [Recovered/Resolved]
  - Fall [Recovered/Resolved]
  - Eye disorder [Recovered/Resolved]
  - Disease progression [Unknown]
  - Pain [Not Recovered/Not Resolved]
  - Feeding disorder [Unknown]
  - Skin disorder [Unknown]
